FAERS Safety Report 8165287-0 (Version None)
Quarter: 2012Q1

REPORT INFORMATION
  Report Type: 
  Country: None (occurrence: None)
  Receive Date: 20120223
  Receipt Date: 20120223
  Transmission Date: 20120608
  Serious: No
  Sender: FDA-Public Use
  Company Number: None

PATIENT
  Sex: Female
  Weight: 90.7194 kg

DRUGS (1)
  1. OXALIPLATIN [Suspect]
     Dosage: 2H INFUSION
     Dates: start: 20100601, end: 20100701

REACTIONS (12)
  - FATIGUE [None]
  - WEIGHT DECREASED [None]
  - VOMITING [None]
  - ABDOMINAL DISCOMFORT [None]
  - MALAISE [None]
  - WHEELCHAIR USER [None]
  - HAND DEFORMITY [None]
  - PAIN IN EXTREMITY [None]
  - ABASIA [None]
  - HYPOPHAGIA [None]
  - DIARRHOEA [None]
  - CHEST PAIN [None]
